FAERS Safety Report 19283841 (Version 2)
Quarter: 2021Q3

REPORT INFORMATION
  Report Type: Report from Study
  Country: US (occurrence: US)
  Receive Date: 20210521
  Receipt Date: 20210802
  Transmission Date: 20211014
  Serious: Yes (Other)
  Sender: FDA-Public Use
  Company Number: US-ASTELLAS-2021US018354

PATIENT
  Age: 58 Year
  Sex: Male

DRUGS (1)
  1. ENZALUTAMIDE [Suspect]
     Active Substance: ENZALUTAMIDE
     Indication: PROSTATE CANCER
     Dosage: 160 MG, ONCE DAILY (QD)
     Route: 048
     Dates: start: 202104

REACTIONS (3)
  - Choking [Unknown]
  - Dyspnoea exertional [Unknown]
  - Product use complaint [Unknown]

NARRATIVE: CASE EVENT DATE: 20210719
